FAERS Safety Report 5015142-X (Version None)
Quarter: 2006Q2

REPORT INFORMATION
  Report Type: 
  Country: None (occurrence: None)
  Receive Date: 20060530
  Receipt Date: 20060515
  Transmission Date: 20061013
  Serious: Yes (Hospitalization)
  Sender: FDA-Public Use
  Company Number: 2006RR-02202

PATIENT
  Age: 79 Year
  Sex: Female

DRUGS (8)
  1. SIMVASTATIN [Suspect]
     Indication: LOWER RESPIRATORY TRACT INFECTION
     Dosage: 80 MG, QD, ORAL
     Route: 048
     Dates: start: 20010101, end: 20060119
  2. CLARITHROMYCIN [Suspect]
     Indication: LOWER RESPIRATORY TRACT INFECTION
     Dosage: 500 MG, BID, ORAL
     Route: 048
     Dates: start: 20060112, end: 20060119
  3. ERYTHROMYCIN [Suspect]
     Indication: LOWER RESPIRATORY TRACT INFECTION
     Dosage: ORAL
     Route: 048
     Dates: start: 20060102, end: 20060109
  4. ADCAL-D3 [Concomitant]
  5. DISPERSIBLE ASPIRIN TABLETS BP (ASPIRIN) [Concomitant]
  6. FRUSEMIDE TABLET BP (FUROSEMIDE) [Concomitant]
  7. DINITRATE D'ISOSORBIDE           (ISOSORBIDE DINITRATE) [Concomitant]
  8. LISINOPRIL [Concomitant]

REACTIONS (3)
  - DEHYDRATION [None]
  - DIZZINESS [None]
  - MYOPATHY [None]
